FAERS Safety Report 5591928-8 (Version None)
Quarter: 2008Q1

REPORT INFORMATION
  Report Type: 
  Country: None (occurrence: None)
  Receive Date: 20080115
  Receipt Date: 20080108
  Transmission Date: 20080703
  Serious: Yes (Other)
  Sender: FDA-Public Use
  Company Number: FR-ELI_LILLY_AND_COMPANY-FR200801001779

PATIENT
  Age: 90 Year
  Sex: Female

DRUGS (1)
  1. FORTEO [Suspect]
     Dosage: 20 UG, UNK
     Route: 058
     Dates: start: 20070101

REACTIONS (9)
  - ABDOMINAL PAIN UPPER [None]
  - BACK PAIN [None]
  - BALANCE DISORDER [None]
  - DRY MOUTH [None]
  - FEAR [None]
  - HEADACHE [None]
  - HEPATIC PAIN [None]
  - NAUSEA [None]
  - PULMONARY EMBOLISM [None]
